FAERS Safety Report 7193601-1 (Version None)
Quarter: 2010Q4

REPORT INFORMATION
  Report Type: 
  Country: None (occurrence: None)
  Receive Date: 20101223
  Receipt Date: 20101221
  Transmission Date: 20110411
  Serious: Yes (Other)
  Sender: FDA-Public Use
  Company Number: US-US-EMD SERONO, INC.-7033015

PATIENT
  Sex: Female
  Weight: 157 kg

DRUGS (1)
  1. REBIF [Suspect]
     Indication: MULTIPLE SCLEROSIS
     Route: 058
     Dates: start: 20061018

REACTIONS (3)
  - INJECTION SITE ERYTHEMA [None]
  - MALIGNANT MELANOMA STAGE I [None]
  - WEIGHT INCREASED [None]
